FAERS Safety Report 25689927 (Version 2)
Quarter: 2025Q3

REPORT INFORMATION
  Report Type: Spontaneous
  Country: AR (occurrence: AR)
  Receive Date: 20250818
  Receipt Date: 20250904
  Transmission Date: 20251020
  Serious: Yes (Hospitalization)
  Sender: ROCHE
  Company Number: AR-002147023-NVSC2025AR126062

PATIENT
  Age: 42 Year
  Sex: Female

DRUGS (2)
  1. XOLAIR [Suspect]
     Active Substance: OMALIZUMAB
     Indication: Chronic spontaneous urticaria
     Route: 058
     Dates: start: 20250610
  2. Supraler forte [Concomitant]

REACTIONS (6)
  - Fluid retention [Recovering/Resolving]
  - Inflammation [Recovering/Resolving]
  - Gait inability [Unknown]
  - Eye disorder [Recovered/Resolved]
  - Inappropriate schedule of product administration [Unknown]
  - Product distribution issue [Unknown]

NARRATIVE: CASE EVENT DATE: 20250701
